FAERS Safety Report 21144088 (Version 7)
Quarter: 2023Q1

REPORT INFORMATION
  Report Type: Report from Study
  Country: US (occurrence: US)
  Receive Date: 20220728
  Receipt Date: 20230216
  Transmission Date: 20230417
  Serious: No
  Sender: FDA-Public Use
  Company Number: US-NOVARTISTESTPH-NVSC2022US170358

PATIENT
  Sex: Female

DRUGS (3)
  1. COSENTYX [Suspect]
     Active Substance: SECUKINUMAB
     Indication: Psoriasis
     Dosage: 300 MG, QW (QW FOR 5 WEEKS THEN QMO)
     Route: 058
  2. COSENTYX [Suspect]
     Active Substance: SECUKINUMAB
     Dosage: UNK (GOT INJECTION ON WEDNESDAY)
     Route: 065
  3. COSENTYX [Suspect]
     Active Substance: SECUKINUMAB
     Dosage: UNK (LAST INJECTION)
     Route: 065
     Dates: start: 20221005

REACTIONS (5)
  - Lactose intolerance [Unknown]
  - Injection site pain [Unknown]
  - Injection site haemorrhage [Unknown]
  - Psoriasis [Unknown]
  - Therapeutic product effect incomplete [Unknown]
